FAERS Safety Report 9299401 (Version 3)
Quarter: 2013Q4

REPORT INFORMATION
  Report Type: Spontaneous
  Country: US (occurrence: US)
  Receive Date: 20130520
  Receipt Date: 20131112
  Transmission Date: 20140711
  Serious: Yes (Hospitalization)
  Sender: FDA-Public Use
  Company Number: US-B.I. PHARMACEUTICALS,INC./RIDGEFIELD-2013-BI-13947BP

PATIENT
  Age: 69 Year
  Sex: Female
  Weight: 119.29 kg

DRUGS (12)
  1. PRADAXA [Suspect]
     Dosage: 300 MG
     Route: 048
     Dates: start: 20110930, end: 20111125
  2. CYMBALTA [Suspect]
     Dosage: 60 MG
     Route: 048
     Dates: start: 2004
  3. METOPROLOL [Concomitant]
     Dosage: 100 MG
     Route: 048
     Dates: start: 2004
  4. BENICAR [Concomitant]
     Dosage: 40 MG
     Route: 048
     Dates: start: 2004
  5. SIMVASTATIN [Concomitant]
     Dosage: 10 MG
     Route: 048
     Dates: start: 2004
  6. DOXYCYCLINE [Concomitant]
     Dosage: 200 MG
     Route: 048
  7. RANITIDINE [Concomitant]
     Dosage: 300 MG
     Route: 048
     Dates: start: 2004
  8. VESICARE [Concomitant]
  9. LORTAB [Concomitant]
     Indication: PAIN
     Route: 048
  10. SYNTHROID [Concomitant]
     Dosage: 200 MCG
     Route: 048
  11. CHOLESTYRAMINE [Concomitant]
  12. LASIX [Concomitant]
     Dosage: 40 MG
     Route: 048

REACTIONS (7)
  - Haemorrhagic diathesis [Recovered/Resolved]
  - Ileus [Recovered/Resolved]
  - Haemorrhage [Recovered/Resolved]
  - Respiratory failure [Unknown]
  - Epistaxis [Recovered/Resolved]
  - Wound secretion [Unknown]
  - Contusion [Unknown]
